FAERS Safety Report 7170865-1 (Version None)
Quarter: 2010Q4

REPORT INFORMATION
  Report Type: 
  Country: None (occurrence: None)
  Receive Date: 20101217
  Receipt Date: 20101214
  Transmission Date: 20110411
  Serious: Yes (Hospitalization, Other)
  Sender: FDA-Public Use
  Company Number: DK-GENZYME-CAMP-1000573

PATIENT
  Sex: Female
  Weight: 86 kg

DRUGS (4)
  1. ALEMTUZUMAB [Suspect]
     Indication: MULTIPLE SCLEROSIS
     Dosage: 12 MG, QDX5
     Route: 042
     Dates: start: 20090202, end: 20090206
  2. ALEMTUZUMAB [Suspect]
     Dosage: 12 MG, QDX3
     Route: 042
     Dates: start: 20100201, end: 20100203
  3. METHYLPREDNISOLONE [Concomitant]
     Indication: MULTIPLE SCLEROSIS
     Dosage: 1.0 G, QDX3
     Route: 042
     Dates: start: 20090202, end: 20090204
  4. METHYLPREDNISOLONE [Concomitant]
     Dosage: 1.0 G, QDX3
     Route: 042
     Dates: start: 20100201, end: 20100203

REACTIONS (4)
  - DYSPNOEA [None]
  - HYPOTHYROIDISM [None]
  - OEDEMA PERIPHERAL [None]
  - WEIGHT INCREASED [None]
